FAERS Safety Report 13064407 (Version 3)
Quarter: 2017Q2

REPORT INFORMATION
  Report Type: Report from Study
  Country: FR (occurrence: FR)
  Receive Date: 20161227
  Receipt Date: 20170420
  Transmission Date: 20170830
  Serious: Yes (Other)
  Sender: FDA-Public Use
  Company Number: FR-JNJFOC-20161218862

PATIENT
  Age: 55 Year
  Sex: Female
  Weight: 58 kg

DRUGS (2)
  1. APRANAX [Concomitant]
     Active Substance: NAPROXEN
     Indication: ANKYLOSING SPONDYLITIS
     Route: 048
     Dates: start: 20150430
  2. SIMPONI [Suspect]
     Active Substance: GOLIMUMAB
     Indication: ANKYLOSING SPONDYLITIS
     Route: 058
     Dates: start: 20151121

REACTIONS (6)
  - Bone fistula [Unknown]
  - Bone loss [Not Recovered/Not Resolved]
  - Device related infection [Recovered/Resolved]
  - Erythema migrans [Recovered/Resolved]
  - Arthropod bite [Recovered/Resolved]
  - Iron deficiency anaemia [Recovered/Resolved]

NARRATIVE: CASE EVENT DATE: 201605
